FAERS Safety Report 9731943 (Version 1)
Quarter: 2013Q4

REPORT INFORMATION
  Report Type: Spontaneous
  Country: JP (occurrence: JP)
  Receive Date: 20131204
  Receipt Date: 20131204
  Transmission Date: 20140711
  Serious: Yes (Other)
  Sender: FDA-Public Use
  Company Number: JP-ASTELLAS-2013US012533

PATIENT
  Age: 64 Year
  Sex: Female

DRUGS (2)
  1. ERLOTINIB [Suspect]
     Indication: LUNG ADENOCARCINOMA
     Dosage: UNK
     Route: 048
  2. ERLOTINIB [Suspect]
     Indication: METASTASES TO LYMPH NODES
     Dosage: UNK
     Route: 048

REACTIONS (1)
  - Kaposi^s varicelliform eruption [Recovering/Resolving]
